FAERS Safety Report 7234802-3 (Version None)
Quarter: 2011Q1

REPORT INFORMATION
  Report Type: 
  Country: None (occurrence: None)
  Receive Date: 20110120
  Receipt Date: 20110113
  Transmission Date: 20110831
  Serious: Yes (Other)
  Sender: FDA-Public Use
  Company Number: US-ASTRAZENECA-2007UW01564

PATIENT
  Age: 706 Month
  Sex: Female
  Weight: 44.5 kg

DRUGS (10)
  1. SEROQUEL [Suspect]
     Indication: SLEEP DISORDER
     Route: 048
     Dates: start: 19980101, end: 20061201
  2. ZYPREXA [Suspect]
     Indication: ANXIETY
     Dosage: 5 TO 10 MG
     Dates: start: 19970301, end: 20040201
  3. RISPERDAL [Suspect]
     Indication: SLEEP DISORDER
     Dosage: 1 TO 2 MG
     Dates: start: 19980101
  4. HYDROXYZINE PAMOATE [Concomitant]
     Dosage: 25 MG 2 AT BEDTIME
     Dates: start: 20030307
  5. SEROQUEL [Suspect]
     Dosage: 200 MG 3 TABLETS AT BED TIME
     Route: 048
     Dates: start: 20030307
  6. PREVACID [Concomitant]
     Dates: start: 20060921
  7. CLONAZEPAM [Concomitant]
     Dates: start: 20030307
  8. SEROQUEL [Suspect]
     Dosage: 200 MG 3 TABLETS AT BED TIME
     Route: 048
     Dates: start: 20030307
  9. NEURONTIN [Concomitant]
     Dates: start: 20030307
  10. SEROQUEL [Suspect]
     Indication: NERVOUSNESS
     Route: 048
     Dates: start: 19980101, end: 20061201

REACTIONS (2)
  - TYPE 2 DIABETES MELLITUS [None]
  - NEUROPATHY PERIPHERAL [None]
